FAERS Safety Report 18932728 (Version 1)
Quarter: 2021Q1

REPORT INFORMATION
  Report Type: Spontaneous
  Country: US (occurrence: US)
  Receive Date: 20210223
  Receipt Date: 20210223
  Transmission Date: 20210420
  Serious: No
  Sender: FDA-Public Use
  Company Number: None

PATIENT
  Age: 49 Year
  Sex: Female
  Weight: 81.45 kg

DRUGS (32)
  1. DOXEPIN [Concomitant]
     Active Substance: DOXEPIN
  2. LEVOCETRIZINE [Concomitant]
     Active Substance: LEVOCETIRIZINE
  3. PILOCARPINE. [Concomitant]
     Active Substance: PILOCARPINE
  4. VICTOZA [Suspect]
     Active Substance: LIRAGLUTIDE
     Indication: WEIGHT DECREASED
     Dosage: ?          QUANTITY:1 INJECTION(S);?
     Route: 058
     Dates: start: 20191031, end: 20210208
  5. NEURONTIN [Concomitant]
     Active Substance: GABAPENTIN
  6. AMBIEN [Concomitant]
     Active Substance: ZOLPIDEM TARTRATE
  7. EMGALITY [Concomitant]
     Active Substance: GALCANEZUMAB-GNLM
  8. GEMFIBROZIL. [Concomitant]
     Active Substance: GEMFIBROZIL
  9. LAMICTAL [Concomitant]
     Active Substance: LAMOTRIGINE
  10. SYNTHROID [Concomitant]
     Active Substance: LEVOTHYROXINE SODIUM
  11. STOOL SOFTENER (DOCUSATE) [Concomitant]
     Active Substance: DOCUSATE
  12. BYSTOLIC [Concomitant]
     Active Substance: NEBIVOLOL HYDROCHLORIDE
  13. PROPRANOLOL [Concomitant]
     Active Substance: PROPRANOLOL HYDROCHLORIDE
  14. BUSPAR [Concomitant]
     Active Substance: BUSPIRONE HYDROCHLORIDE
  15. CALCIUM [Concomitant]
     Active Substance: CALCIUM
  16. KLONOPIN [Concomitant]
     Active Substance: CLONAZEPAM
  17. PRILOSEC [Concomitant]
     Active Substance: OMEPRAZOLE MAGNESIUM
  18. FLAXSEED [Concomitant]
     Active Substance: FLAX SEED
  19. MAGNESIUM [Concomitant]
     Active Substance: MAGNESIUM
  20. METHOCARBAMOL. [Concomitant]
     Active Substance: METHOCARBAMOL
  21. FLONASE [Concomitant]
     Active Substance: FLUTICASONE PROPIONATE
  22. MELATONIN [Concomitant]
     Active Substance: MELATONIN
  23. VICTOZA [Suspect]
     Active Substance: LIRAGLUTIDE
     Indication: DIABETES MELLITUS
     Dosage: ?          QUANTITY:1 INJECTION(S);?
     Route: 058
     Dates: start: 20191031, end: 20210208
  24. BENADRYL [Concomitant]
     Active Substance: DIPHENHYDRAMINE HYDROCHLORIDE
  25. MIRALAX [Concomitant]
     Active Substance: POLYETHYLENE GLYCOL 3350
  26. CRESTOR [Concomitant]
     Active Substance: ROSUVASTATIN CALCIUM
  27. FIBER [Concomitant]
     Active Substance: PSYLLIUM HUSK
  28. LATUDA [Concomitant]
     Active Substance: LURASIDONE HYDROCHLORIDE
  29. GLUCOSAMINE [Concomitant]
     Active Substance: GLUCOSAMINE
  30. POTASSIUM [Concomitant]
     Active Substance: POTASSIUM
  31. VITAMIN A [Concomitant]
     Active Substance: VITAMIN A
  32. MULTI VITAMIN [Concomitant]
     Active Substance: VITAMINS

REACTIONS (1)
  - Heart rate increased [None]

NARRATIVE: CASE EVENT DATE: 20210123
